FAERS Safety Report 7938142-6 (Version None)
Quarter: 2011Q4

REPORT INFORMATION
  Report Type: 
  Country: None (occurrence: None)
  Receive Date: 20111123
  Receipt Date: 20110808
  Transmission Date: 20120403
  Serious: No
  Sender: FDA-Public Use
  Company Number: US-BRISTOL-MYERS SQUIBB COMPANY-15907322

PATIENT
  Age: 72 Year
  Sex: Male

DRUGS (6)
  1. LISINOPRIL [Concomitant]
  2. ONGLYZA [Suspect]
     Dosage: TAKEN 3 AND A HALF MONTHS;
  3. METFORMIN [Concomitant]
  4. GLIMEPIRIDE [Concomitant]
  5. FISH OIL [Concomitant]
  6. ACTOS [Concomitant]

REACTIONS (2)
  - ABDOMINAL PAIN UPPER [None]
  - GLYCOSYLATED HAEMOGLOBIN INCREASED [None]
